FAERS Safety Report 7362393-5 (Version None)
Quarter: 2011Q1

REPORT INFORMATION
  Report Type: 
  Country: None (occurrence: None)
  Receive Date: 20110318
  Receipt Date: 20110309
  Transmission Date: 20110831
  Serious: Yes (Other)
  Sender: FDA-Public Use
  Company Number: IE-ASTRAZENECA-2011SE10707

PATIENT
  Age: 26288 Day
  Sex: Male

DRUGS (3)
  1. NEXIUM [Concomitant]
     Route: 048
  2. ELTROXIN [Concomitant]
     Route: 048
  3. ATACAND HCT [Suspect]
     Indication: HYPERTENSION
     Route: 048
     Dates: start: 20110119, end: 20110201

REACTIONS (2)
  - ABDOMINAL DISTENSION [None]
  - DIARRHOEA [None]
